FAERS Safety Report 6159484-3 (Version None)
Quarter: 2009Q2

REPORT INFORMATION
  Report Type: 
  Country: None (occurrence: None)
  Receive Date: 20090420
  Receipt Date: 20090414
  Transmission Date: 20091009
  Serious: Yes (Hospitalization)
  Sender: FDA-Public Use
  Company Number: GB-SP-2009-01594

PATIENT
  Age: 77 Year
  Sex: Male

DRUGS (3)
  1. IMMUCYST [Suspect]
     Indication: BLADDER CANCER
     Route: 043
     Dates: start: 20090121, end: 20090212
  2. IMMUCYST [Suspect]
     Route: 043
     Dates: start: 20090121, end: 20090212
  3. IMMUCYST [Suspect]
     Route: 043
     Dates: start: 20090121, end: 20090212

REACTIONS (6)
  - CHILLS [None]
  - DEHYDRATION [None]
  - DEPRESSED LEVEL OF CONSCIOUSNESS [None]
  - HYPOTENSION [None]
  - MALAISE [None]
  - PYREXIA [None]
